FAERS Safety Report 5584592-5 (Version None)
Quarter: 2008Q1

REPORT INFORMATION
  Report Type: 
  Country: None (occurrence: None)
  Receive Date: 20080108
  Receipt Date: 20071127
  Transmission Date: 20080703
  Serious: Yes (Hospitalization, Other)
  Sender: FDA-Public Use
  Company Number: JP-RANBAXY-2007US-11593

PATIENT

DRUGS (5)
  1. ISOPTIN SR [Suspect]
     Indication: DRUG USE FOR UNKNOWN INDICATION
     Dosage: 120 MG, UNK
     Route: 048
     Dates: start: 20070801, end: 20071030
  2. TRIAZOLAM [Interacting]
     Indication: INSOMNIA
     Dosage: 0.25 MG, BEFORE BEDTIME
     Route: 048
     Dates: end: 20071030
  3. GLYBURIDE [Concomitant]
     Indication: DIABETES MELLITUS
     Dosage: 1.25 MG, QD
     Route: 048
  4. SENNA EXTRACT [Concomitant]
     Indication: CONSTIPATION
     Dosage: 80 MG, QD BEFORE BEDTIME
     Route: 048
  5. UBIDECARENONE [Concomitant]
     Indication: DRUG USE FOR UNKNOWN INDICATION
     Dosage: 30 MG, QD
     Route: 048
     Dates: start: 20070801

REACTIONS (7)
  - BRADYCARDIA [None]
  - CARDIAC FAILURE [None]
  - DRUG INTERACTION [None]
  - MALAISE [None]
  - NODAL RHYTHM [None]
  - SICK SINUS SYNDROME [None]
  - VOMITING [None]
